FAERS Safety Report 6244776-X (Version None)
Quarter: 2009Q2

REPORT INFORMATION
  Report Type: 
  Country: None (occurrence: None)
  Receive Date: 20090619
  Receipt Date: 20090417
  Transmission Date: 20091009
  Serious: No
  Sender: FDA-Public Use
  Company Number: ALL1-2009-01031

PATIENT
  Age: 34 Year
  Sex: Female
  Weight: 69.8 kg

DRUGS (5)
  1. VYVANSE [Suspect]
     Indication: DISTURBANCE IN ATTENTION
     Dosage: 30 MG, 1X/DAY:QD, ORAL
     Route: 048
     Dates: start: 20090414
  2. LAMICTAL [Concomitant]
  3. SYNTHROID [Concomitant]
  4. TYLENOL PM /00435101/ (DIPHENHYDRAMINE HYDROCHLORIDE, PARACETAMOL) [Concomitant]
  5. XANAX [Concomitant]

REACTIONS (3)
  - ANXIETY [None]
  - BRUXISM [None]
  - HEART RATE INCREASED [None]
